FAERS Safety Report 5142890-3 (Version None)
Quarter: 2007Q1

REPORT INFORMATION
  Report Type: 
  Country: None (occurrence: None)
  Receive Date: 20061030
  Receipt Date: 20061030
  Transmission Date: 20070707
  Serious: Yes (Death)
  Sender: FDA-Public Use
  Company Number: 2006SP004614

PATIENT
  Age: 78 Year
  Sex: Male

DRUGS (4)
  1. CELESTAMINE TAB [Suspect]
     Indication: DRUG USE FOR UNKNOWN INDICATION
     Dosage: 1 DF; QD; PO
     Route: 048
  2. RIZABEN [Concomitant]
  3. SPIROPENT [Concomitant]
  4. EPADEL [Concomitant]

REACTIONS (1)
  - DEATH [None]
